FAERS Safety Report 5174184-4 (Version None)
Quarter: 2006Q4

REPORT INFORMATION
  Report Type: 
  Country: None (occurrence: None)
  Receive Date: 20061214
  Receipt Date: 20061204
  Transmission Date: 20070319
  Serious: Yes (Hospitalization)
  Sender: FDA-Public Use
  Company Number: GB-JNJFOC-20061200945

PATIENT
  Age: 70 Year
  Sex: Female

DRUGS (5)
  1. DOXIL [Suspect]
     Indication: LYMPHOMA
     Route: 042
  2. CYCLOPHOSPHAMIDE [Suspect]
     Indication: LYMPHOMA
  3. MABTHERA [Suspect]
     Indication: LYMPHOMA
  4. PREDNISONE TAB [Suspect]
     Indication: LYMPHOMA
  5. VINCRISTINE [Suspect]
     Indication: LYMPHOMA

REACTIONS (1)
  - CENTRAL PONTINE MYELINOLYSIS [None]
